FAERS Safety Report 9160582 (Version 1)
Quarter: 2013Q1

REPORT INFORMATION
  Report Type: Spontaneous
  Country: DK (occurrence: None)
  Receive Date: 20130215
  Receipt Date: 20130215
  Transmission Date: 20140127
  Serious: Yes (Other)
  Sender: FDA-Public Use
  Company Number: 2013MA001048

PATIENT
  Age: 4 Year
  Sex: Male

DRUGS (2)
  1. CETIRIZINE HYDROCHLORIDE [Suspect]
     Route: 048
     Dates: start: 201206
  2. MELATONIN (MELATONIN) [Suspect]
     Route: 048
     Dates: start: 201202

REACTIONS (2)
  - Wrong drug administered [None]
  - Depressed level of consciousness [None]
